FAERS Safety Report 7102492-6 (Version None)
Quarter: 2010Q4

REPORT INFORMATION
  Report Type: 
  Country: None (occurrence: None)
  Receive Date: 20101115
  Receipt Date: 20101103
  Transmission Date: 20110411
  Serious: Yes (Hospitalization)
  Sender: FDA-Public Use
  Company Number: US-JNJFOC-20101101759

PATIENT
  Age: 23 Year
  Sex: Male
  Weight: 72.7 kg

DRUGS (3)
  1. ACETAMINOPHEN/DIPHENHYDRAMINE HCL [Suspect]
     Indication: SELF INJURIOUS BEHAVIOUR
     Route: 048
  2. NO-DOZ [Suspect]
     Indication: SLEEP DISORDER THERAPY
     Route: 048
  3. ALCOHOL [Suspect]
     Indication: SLEEP DISORDER THERAPY
     Route: 048

REACTIONS (4)
  - BLOOD CREATININE INCREASED [None]
  - INTENTIONAL OVERDOSE [None]
  - SOMNOLENCE [None]
  - TACHYCARDIA [None]
